FAERS Safety Report 8717807 (Version 3)
Quarter: 2015Q3

REPORT INFORMATION
  Report Type: Report from Study
  Country: US (occurrence: US)
  Receive Date: 20120810
  Receipt Date: 20150713
  Transmission Date: 20151125
  Serious: Yes (Hospitalization)
  Sender: FDA-Public Use
  Company Number: US-ROCHE-1097922

PATIENT
  Sex: Male

DRUGS (7)
  1. ENALAPRIL [Concomitant]
     Active Substance: ENALAPRIL
  2. HEPARIN [Concomitant]
     Active Substance: HEPARIN SODIUM
     Dosage: 25KU/500 ML
     Route: 065
  3. ACTIVASE [Suspect]
     Active Substance: ALTEPLASE
     Indication: ACUTE MYOCARDIAL INFARCTION
     Route: 040
     Dates: start: 19900821
  4. LIDOCAINE. [Concomitant]
     Active Substance: LIDOCAINE
     Route: 042
  5. LIDOCAINE. [Concomitant]
     Active Substance: LIDOCAINE
     Route: 041
  6. MORPHINE SULFATE. [Concomitant]
     Active Substance: MORPHINE SULFATE
     Route: 042
  7. ZANTAC [Concomitant]
     Active Substance: RANITIDINE HYDROCHLORIDE
     Route: 065

REACTIONS (4)
  - Bradycardia [Recovering/Resolving]
  - Chest pain [Unknown]
  - Ventricular extrasystoles [Unknown]
  - Labile blood pressure [Recovering/Resolving]
